FAERS Safety Report 24885457 (Version 2)
Quarter: 2025Q1

REPORT INFORMATION
  Report Type: Report from Study
  Country: CA (occurrence: CA)
  Receive Date: 20250124
  Receipt Date: 20250214
  Transmission Date: 20250409
  Serious: Yes (Death, Hospitalization, Other)
  Sender: JAZZ
  Company Number: CA-JAZZ PHARMACEUTICALS-2025-CA-002215

PATIENT
  Sex: Male

DRUGS (1)
  1. EPIDIOLEX [Suspect]
     Active Substance: CANNABIDIOL
     Indication: Epilepsy
     Dosage: 1.6 MILLILITER (160 MILLIGRAM) BID ROUTE STOMA
     Dates: start: 202407

REACTIONS (3)
  - Death [Fatal]
  - Pneumonia aspiration [Unknown]
  - Blood ketone body decreased [Unknown]
